FAERS Safety Report 9328927 (Version 1)
Quarter: 2013Q2

REPORT INFORMATION
  Report Type: Spontaneous
  Country: US (occurrence: US)
  Receive Date: 20130604
  Receipt Date: 20130604
  Transmission Date: 20140414
  Serious: No
  Sender: FDA-Public Use
  Company Number: US-SANOFI-AVENTIS-2013SA021187

PATIENT
  Age: 73 Year
  Sex: Male

DRUGS (1)
  1. LANTUS [Suspect]
     Dosage: PRODUCT START DATE 7-10 YEARS DOSE:40 UNIT(S)
     Route: 051

REACTIONS (1)
  - Abnormal sleep-related event [Unknown]
